FAERS Safety Report 5907798-1 (Version None)
Quarter: 2008Q4

REPORT INFORMATION
  Report Type: 
  Country: None (occurrence: None)
  Receive Date: 20081003
  Receipt Date: 20080925
  Transmission Date: 20090506
  Serious: Yes (Other)
  Sender: FDA-Public Use
  Company Number: FR-ABBOTT-08P-056-0476808-00

PATIENT
  Sex: Male

DRUGS (7)
  1. HUMIRA [Suspect]
     Indication: ANKYLOSING SPONDYLITIS
     Route: 058
     Dates: start: 20061001
  2. HUMIRA [Suspect]
     Route: 058
     Dates: start: 20080501
  3. INFLIXIMAB [Suspect]
     Indication: ANKYLOSING SPONDYLITIS
     Route: 042
     Dates: start: 20051001, end: 20060301
  4. ETANERCEPT [Suspect]
     Indication: ANKYLOSING SPONDYLITIS
     Route: 058
     Dates: start: 20060401, end: 20060601
  5. METHOTREXATE SODIUM [Concomitant]
     Indication: ANKYLOSING SPONDYLITIS
     Dates: start: 20051001
  6. NAPROXEN [Concomitant]
     Indication: ANKYLOSING SPONDYLITIS
     Dates: start: 20051001
  7. ESOMEPRAZOLE MAGNESIUM [Concomitant]
     Indication: ANKYLOSING SPONDYLITIS
     Dates: start: 20051001

REACTIONS (2)
  - PSORIASIS [None]
  - PUSTULAR PSORIASIS [None]
